FAERS Safety Report 10370921 (Version 1)
Quarter: 2014Q1

REPORT INFORMATION
  Report Type: Spontaneous
  Country: US (occurrence: None)
  Receive Date: 20140306
  Receipt Date: 20140306
  Transmission Date: 20141002
  Serious: Yes (Hospitalization)
  Sender: FDA-Public Use
  Company Number: 163-21880-13080742

PATIENT
  Age: 70 Year
  Sex: Male
  Weight: 74.84 kg

DRUGS (7)
  1. REVLIMID (LENALIDOMIDE) (25 MILLIGRAM, CAPSULES) [Suspect]
     Indication: PLASMA CELL MYELOMA
     Dosage: 25 MG, 21 IN 21 D, PO
     Route: 048
     Dates: start: 201307
  2. WARFARIN (WARFARIN) (UNKNOWN) [Concomitant]
  3. HYDROXYUREA (HYDROXYCARBAMIDE) (UNKNOWN) [Concomitant]
  4. SIMVASTATIN (SIMVASTATIN) (UNKNOWN) [Concomitant]
  5. GABAPENTIN (GABAPENTIN) (UNKNOWN) (GABAPENTIN) [Concomitant]
  6. LOSARTAIN (LOSARTAN) (UNKNOWN) [Concomitant]
  7. HCTZ (HYDROCHLOROTHIAZIDE) (UNKNOWN) [Concomitant]

REACTIONS (2)
  - Renal failure [None]
  - Full blood count decreased [None]
